FAERS Safety Report 25740035 (Version 1)
Quarter: 2025Q3

REPORT INFORMATION
  Report Type: Spontaneous
  Country: US (occurrence: US)
  Receive Date: 20250829
  Receipt Date: 20250829
  Transmission Date: 20251020
  Serious: Yes (Hospitalization)
  Sender: SANOFI AVENTIS
  Company Number: US-SA-2025SA258667

PATIENT
  Age: 77 Year
  Sex: Female

DRUGS (2)
  1. DUPIXENT [Suspect]
     Active Substance: DUPILUMAB
     Indication: Dermatitis atopic
     Dosage: 300 MG, QOW
     Route: 058
     Dates: start: 20250611, end: 2025
  2. COSENTYX [Suspect]
     Active Substance: SECUKINUMAB
     Dates: start: 2025, end: 20250806

REACTIONS (5)
  - Blood pressure decreased [Unknown]
  - Dehydration [Unknown]
  - Dialysis [Unknown]
  - Feeling abnormal [Unknown]
  - Dermatitis atopic [Unknown]

NARRATIVE: CASE EVENT DATE: 20250101
